FAERS Safety Report 25990285 (Version 2)
Quarter: 2025Q4

REPORT INFORMATION
  Report Type: Spontaneous
  Country: EU (occurrence: EU)
  Receive Date: 20251103
  Receipt Date: 20251107
  Transmission Date: 20260117
  Serious: Yes (Other)
  Sender: ESPERION THERAPEUTICS
  Company Number: EU-DAIICHI SANKYO EUROPE GMBH-DS-2025-172549-DE

PATIENT

DRUGS (1)
  1. BEMPEDOIC ACID\EZETIMIBE [Suspect]
     Active Substance: BEMPEDOIC ACID\EZETIMIBE
     Indication: Hypercholesterolaemia
     Dosage: DAILY DOSE AT 180/10 MG
     Route: 048

REACTIONS (1)
  - Feeding tube user [Not Recovered/Not Resolved]

NARRATIVE: CASE EVENT DATE: 20251001
